FAERS Safety Report 12965902 (Version 1)
Quarter: 2016Q4

REPORT INFORMATION
  Report Type: Spontaneous
  Country: HU (occurrence: HU)
  Receive Date: 20161122
  Receipt Date: 20161122
  Transmission Date: 20170207
  Serious: Yes (Other)
  Sender: FDA-Public Use
  Company Number: HU-TEVA-711980ISR

PATIENT
  Age: 48 Year
  Sex: Female

DRUGS (6)
  1. ETOPOSIDE. [Suspect]
     Active Substance: ETOPOSIDE
     Indication: OVARIAN CANCER
     Dosage: 6 CYCLES
     Route: 065
     Dates: start: 201202, end: 201207
  2. IFOSFAMIDE. [Suspect]
     Active Substance: IFOSFAMIDE
     Indication: OVARIAN CANCER
     Dosage: 6 CYCLES
     Route: 065
     Dates: start: 201202, end: 201207
  3. FLUOROURACIL. [Suspect]
     Active Substance: FLUOROURACIL
     Indication: OVARIAN CANCER
     Dosage: 11 CYCLES
     Route: 065
     Dates: start: 201310
  4. OXALIPLATIN. [Suspect]
     Active Substance: OXALIPLATIN
     Indication: OVARIAN CANCER
     Dosage: 11 CYCLES
     Route: 065
     Dates: start: 201310
  5. FOLINIC ACID [Suspect]
     Active Substance: LEUCOVORIN
     Indication: OVARIAN CANCER
     Dosage: 11 CYCLES
     Route: 065
     Dates: start: 201310
  6. CISPLATIN. [Suspect]
     Active Substance: CISPLATIN
     Indication: OVARIAN CANCER
     Dosage: 6 CYCLES
     Route: 065
     Dates: start: 201202, end: 201207

REACTIONS (15)
  - Haemoglobin decreased [Recovered/Resolved]
  - Asthenia [Unknown]
  - Thrombocytopenia [Recovered/Resolved]
  - Fatigue [Unknown]
  - Malaise [Unknown]
  - Nausea [Unknown]
  - Diarrhoea [Unknown]
  - Platelet count decreased [Unknown]
  - Feeling abnormal [Unknown]
  - Abdominal pain [Unknown]
  - Off label use [Unknown]
  - Neuralgia [Unknown]
  - White blood cell count decreased [Unknown]
  - Purpura [Recovered/Resolved]
  - Neutropenia [Recovered/Resolved]

NARRATIVE: CASE EVENT DATE: 2012
